FAERS Safety Report 25368648 (Version 1)
Quarter: 2025Q2

REPORT INFORMATION
  Report Type: Spontaneous
  Country: US (occurrence: US)
  Receive Date: 20250528
  Receipt Date: 20250528
  Transmission Date: 20250717
  Serious: No
  Sender: Kenvue
  Company Number: US-KENVUE-20250504152

PATIENT
  Age: 77 Year
  Sex: Female

DRUGS (1)
  1. WOMENS ROGAINE UNSCENTED [Suspect]
     Active Substance: MINOXIDIL
     Indication: Alopecia
     Dosage: MORE THAN A CAPFUL, ONCE A DAY
     Route: 061
     Dates: start: 20250507

REACTIONS (2)
  - Product use in unapproved indication [Unknown]
  - Overdose [Unknown]

NARRATIVE: CASE EVENT DATE: 20250507
